FAERS Safety Report 18641690 (Version 1)
Quarter: 2020Q4

REPORT INFORMATION
  Report Type: Report from Study
  Country: CO (occurrence: CO)
  Receive Date: 20201221
  Receipt Date: 20201221
  Transmission Date: 20210114
  Serious: Yes (Other)
  Sender: FDA-Public Use
  Company Number: CO-JNJFOC-20201233283

PATIENT
  Age: 47 Year
  Sex: Male
  Weight: 111 kg

DRUGS (4)
  1. CLONAZEPAM;ESCITALOPRAM OXALATE [Concomitant]
  2. SIMPONI [Suspect]
     Active Substance: GOLIMUMAB
     Indication: ANKYLOSING SPONDYLITIS
     Route: 058
     Dates: start: 20201211
  3. TAPENTADOL [Concomitant]
     Active Substance: TAPENTADOL
  4. LEVOPROMAZIN [Concomitant]
     Active Substance: LEVOMEPROMAZINE

REACTIONS (2)
  - Acne [Not Recovered/Not Resolved]
  - Helicobacter infection [Not Recovered/Not Resolved]

NARRATIVE: CASE EVENT DATE: 20201214
